FAERS Safety Report 4459155-5 (Version None)
Quarter: 2004Q3

REPORT INFORMATION
  Report Type: 
  Country: None (occurrence: None)
  Receive Date: 20040927
  Receipt Date: 20040914
  Transmission Date: 20050211
  Serious: Yes (Death)
  Sender: FDA-Public Use
  Company Number: 200416988US

PATIENT
  Sex: Male

DRUGS (6)
  1. KETEK [Suspect]
     Indication: BRONCHITIS
     Route: 048
     Dates: start: 20040827, end: 20040902
  2. KETEK [Suspect]
     Indication: UPPER RESPIRATORY TRACT INFECTION
     Route: 048
     Dates: start: 20040827, end: 20040902
  3. ADVAIR DISKUS 100/50 [Concomitant]
     Dosage: DOSE: UNK
  4. DELTISON [Concomitant]
     Dosage: DOSE: UNK
  5. ZOCOR [Concomitant]
     Dosage: DOSE: UNK
  6. PREVACID [Concomitant]
     Dosage: DOSE: UNK

REACTIONS (5)
  - BLOOD CHOLESTEROL INCREASED [None]
  - CARDIO-RESPIRATORY ARREST [None]
  - CIRCULATORY COLLAPSE [None]
  - LOW DENSITY LIPOPROTEIN INCREASED [None]
  - MYOCARDIAL INFARCTION [None]
